FAERS Safety Report 4795142-5 (Version None)
Quarter: 2005Q4

REPORT INFORMATION
  Report Type: 
  Country: None (occurrence: None)
  Receive Date: 20051006
  Receipt Date: 20050926
  Transmission Date: 20060501
  Serious: Yes (Death)
  Sender: FDA-Public Use
  Company Number: 12469

PATIENT
  Age: 49 Year
  Sex: Male

DRUGS (4)
  1. MORPHINE [Suspect]
  2. CODEINE [Suspect]
  3. AMITRIPTYLINE HCL [Suspect]
     Indication: DEPRESSION
  4. NORTIPTYLINE [Suspect]

REACTIONS (1)
  - INTENTIONAL DRUG MISUSE [None]
